FAERS Safety Report 4721294-9 (Version None)
Quarter: 2005Q3

REPORT INFORMATION
  Report Type: 
  Country: None (occurrence: None)
  Receive Date: 20050721
  Receipt Date: 20040602
  Transmission Date: 20060218
  Serious: No
  Sender: FDA-Public Use
  Company Number: US-BRISTOL-MYERS SQUIBB COMPANY-12602108

PATIENT
  Age: 70 Year
  Sex: Male
  Weight: 91 kg

DRUGS (1)
  1. WARFARIN SODIUM [Suspect]
     Indication: HEART VALVE REPLACEMENT
     Dosage: PREVIOUSLY ON COUMADIN 10MG APPROX 8YRS AGO + SWITCHED TO WARFARIN SODIUM(UNK MFR)APPROX 1 MONTH AGO
     Route: 048
     Dates: start: 20040501

REACTIONS (1)
  - EPISTAXIS [None]
